FAERS Safety Report 24769667 (Version 1)
Quarter: 2024Q4

REPORT INFORMATION
  Report Type: Spontaneous
  Country: US (occurrence: US)
  Receive Date: 20241224
  Receipt Date: 20241224
  Transmission Date: 20250114
  Serious: No
  Sender: TEVA
  Company Number: US-TEVA-VS-3274570

PATIENT
  Age: 70 Year
  Sex: Female

DRUGS (2)
  1. LIDOCAINE [Suspect]
     Active Substance: LIDOCAINE
     Indication: Back pain
     Route: 062
  2. LIDOCAINE [Suspect]
     Active Substance: LIDOCAINE
     Indication: Sciatica

REACTIONS (4)
  - Application site pain [Unknown]
  - Off label use [Unknown]
  - Application site erythema [Unknown]
  - Dermatitis contact [Unknown]
